FAERS Safety Report 19512218 (Version 1)
Quarter: 2021Q3

REPORT INFORMATION
  Report Type: Spontaneous
  Country: AU (occurrence: AU)
  Receive Date: 20210709
  Receipt Date: 20210709
  Transmission Date: 20211014
  Serious: Yes (Life-Threatening, Other)
  Sender: FDA-Public Use
  Company Number: AU-PFIZER INC-2021566273

PATIENT
  Age: 18 Year
  Sex: Male
  Weight: 68 kg

DRUGS (9)
  1. PHENYTOIN. [Suspect]
     Active Substance: PHENYTOIN
     Indication: SEIZURE PROPHYLAXIS
     Dosage: 300 MG, DAILY
     Route: 048
  2. ISOFLURANE. [Suspect]
     Active Substance: ISOFLURANE
     Indication: ANAESTHESIA
     Dosage: UNK
  3. AMOXYCILLIN [Concomitant]
     Active Substance: AMOXICILLIN
     Dosage: 2 G
  4. ATRACURIUM [Suspect]
     Active Substance: ATRACURIUM
     Indication: ANAESTHESIA
     Dosage: 40 MG
  5. THIOPENTONE SODIUM [Concomitant]
     Active Substance: THIOPENTAL SODIUM
     Indication: ANAESTHESIA
     Dosage: 600 MG
  6. FRUSEMIDE [FUROSEMIDE] [Concomitant]
     Active Substance: FUROSEMIDE
     Dosage: 20 MG
  7. THIOPENTONE SODIUM [Concomitant]
     Active Substance: THIOPENTAL SODIUM
     Dosage: A CONTINUOUS INFUSION OF THIOPENTONE
  8. ATRACURIUM [Suspect]
     Active Substance: ATRACURIUM
     Dosage: 15 UG/KG/MIN
  9. FLUCLOXACILLIN [Concomitant]
     Active Substance: FLUCLOXACILLIN
     Dosage: 2 G

REACTIONS (1)
  - Drug ineffective [Recovered/Resolved]
